FAERS Safety Report 11317149 (Version 3)
Quarter: 2015Q3

REPORT INFORMATION
  Report Type: Spontaneous
  Country: DE (occurrence: DE)
  Receive Date: 20150728
  Receipt Date: 20150810
  Transmission Date: 20151125
  Serious: Yes (Death, Hospitalization)
  Sender: FDA-Public Use
  Company Number: DE-TEVA-581054ISR

PATIENT
  Age: 42 Year
  Sex: Female
  Weight: 100 kg

DRUGS (3)
  1. TAXOMEDAC [Suspect]
     Active Substance: PACLITAXEL
     Indication: METASTASES TO LIVER
     Route: 042
     Dates: start: 20141217, end: 20150520
  2. AVASTIN [Suspect]
     Active Substance: BEVACIZUMAB
     Indication: METASTASES TO LIVER
     Dosage: 2.8571 MG/KG DAILY;
     Route: 042
     Dates: start: 20141217, end: 20150520
  3. AVASTIN [Suspect]
     Active Substance: BEVACIZUMAB
     Route: 042
     Dates: start: 20150622

REACTIONS (10)
  - Ascites [Fatal]
  - Hepatorenal syndrome [Fatal]
  - Jaundice [Unknown]
  - Cholelithiasis [Unknown]
  - Acute hepatic failure [Fatal]
  - Hepatic enzyme increased [Unknown]
  - Abdominal pain [Unknown]
  - Nausea [Unknown]
  - Hepatic encephalopathy [Fatal]
  - Diarrhoea [Unknown]

NARRATIVE: CASE EVENT DATE: 20150625
